FAERS Safety Report 17109790 (Version 2)
Quarter: 2019Q4

REPORT INFORMATION
  Report Type: Spontaneous
  Country: US (occurrence: US)
  Receive Date: 20191204
  Receipt Date: 20191213
  Transmission Date: 20200122
  Serious: No
  Sender: FDA-Public Use
  Company Number: US-SAGE-2019SAGE000072

PATIENT

DRUGS (1)
  1. ZULRESSO [Suspect]
     Active Substance: BREXANOLONE
     Indication: PERINATAL DEPRESSION
     Dosage: UNK
     Route: 065
     Dates: start: 20191023, end: 20191026

REACTIONS (2)
  - Product administration error [Recovered/Resolved]
  - Medication error [Recovered/Resolved]

NARRATIVE: CASE EVENT DATE: 201910
